FAERS Safety Report 5474247-X (Version None)
Quarter: 2007Q4

REPORT INFORMATION
  Report Type: 
  Country: None (occurrence: None)
  Receive Date: 20071002
  Receipt Date: 20070606
  Transmission Date: 20080405
  Serious: No
  Sender: FDA-Public Use
  Company Number: US-ASTRAZENECA-2007UW13655

PATIENT
  Age: 68 Year
  Sex: Female
  Weight: 62.6 kg

DRUGS (10)
  1. ARIMIDEX [Suspect]
     Indication: BREAST CANCER
     Route: 048
  2. ARIMIDEX [Suspect]
     Route: 048
  3. AVANDIA [Concomitant]
  4. PREVACID [Concomitant]
  5. AMARYL [Concomitant]
  6. ASPIRIN [Concomitant]
  7. ZOCOR [Concomitant]
  8. FOLIC ACID [Concomitant]
  9. AVAPRO [Concomitant]
  10. CALCIUM [Concomitant]

REACTIONS (5)
  - ARTHRALGIA [None]
  - DEPRESSION [None]
  - HOT FLUSH [None]
  - PAIN IN EXTREMITY [None]
  - PHARYNGOLARYNGEAL PAIN [None]
